FAERS Safety Report 18100581 (Version 2)
Quarter: 2020Q4

REPORT INFORMATION
  Report Type: Spontaneous
  Country: DE (occurrence: DE)
  Receive Date: 20200731
  Receipt Date: 20201013
  Transmission Date: 20210113
  Serious: Yes (Hospitalization, Other)
  Sender: FDA-Public Use
  Company Number: NVSC2020DE213774

PATIENT
  Age: 9 Month
  Sex: Female
  Weight: 8.42 kg

DRUGS (1)
  1. ZOLGENSMA [Suspect]
     Active Substance: ONASEMNOGENE ABEPARVOVEC-XIOI
     Indication: SPINAL MUSCULAR ATROPHY
     Dosage: 46.8 ML, ONCE/SINGLE
     Route: 042
     Dates: start: 20200720, end: 20200720

REACTIONS (4)
  - Pyrexia [Unknown]
  - Transaminases increased [Recovering/Resolving]
  - Ammonia increased [Unknown]
  - Blood alkaline phosphatase decreased [Unknown]

NARRATIVE: CASE EVENT DATE: 20200724
